FAERS Safety Report 12080579 (Version 2)
Quarter: 2016Q1

REPORT INFORMATION
  Report Type: Report from Study
  Country: CA (occurrence: CA)
  Receive Date: 20160216
  Receipt Date: 20160224
  Transmission Date: 20160526
  Serious: Yes (Hospitalization, Other)
  Sender: FDA-Public Use
  Company Number: CA-JNJFOC-20160209690

PATIENT
  Age: 17 Year
  Sex: Male
  Weight: 42.5 kg

DRUGS (1)
  1. REMICADE [Suspect]
     Active Substance: INFLIXIMAB
     Indication: CROHN^S DISEASE
     Route: 042

REACTIONS (4)
  - Malnutrition [Unknown]
  - Intestinal resection [Unknown]
  - Crohn^s disease [Unknown]
  - Treatment failure [Unknown]
